FAERS Safety Report 5307689-3 (Version None)
Quarter: 2007Q2

REPORT INFORMATION
  Report Type: 
  Country: None (occurrence: None)
  Receive Date: 20070425
  Receipt Date: 20070413
  Transmission Date: 20071010
  Serious: Yes (Life-Threatening, Hospitalization, Other)
  Sender: FDA-Public Use
  Company Number: GB-PFIZER INC-2006135572

PATIENT
  Age: 31 Year
  Sex: Female
  Weight: 62 kg

DRUGS (7)
  1. PREDNISOLONE [Suspect]
     Indication: HEPATITIS
     Route: 048
     Dates: start: 20060612, end: 20060618
  2. IBUPROFEN [Suspect]
     Indication: ANALGESIC EFFECT
     Route: 048
     Dates: start: 20060802, end: 20060814
  3. FOLIC ACID [Concomitant]
     Route: 048
  4. LACTULOSE [Concomitant]
     Route: 048
     Dates: start: 20060605
  5. SPIRONOLACTONE [Concomitant]
     Route: 048
     Dates: start: 20060620, end: 20060818
  6. THIAMINE [Concomitant]
     Dates: start: 20060605, end: 20060818
  7. BENZODIAZEPINE DERIVATIVES [Concomitant]
     Indication: ALCOHOL WITHDRAWAL SYNDROME

REACTIONS (3)
  - DUODENAL ULCER [None]
  - HAEMATEMESIS [None]
  - MELAENA [None]
